FAERS Safety Report 10595550 (Version 1)
Quarter: 2014Q4

REPORT INFORMATION
  Report Type: Spontaneous
  Country: US (occurrence: US)
  Receive Date: 20141120
  Receipt Date: 20141120
  Transmission Date: 20150529
  Serious: Yes (Hospitalization, Other)
  Sender: FDA-Public Use
  Company Number: US-AMGEN-USASP2014089660

PATIENT
  Age: 74 Year
  Sex: Female
  Weight: 123.81 kg

DRUGS (10)
  1. CYMBALTA [Concomitant]
     Active Substance: DULOXETINE HYDROCHLORIDE
     Indication: PAIN
     Dosage: 30 MG, 2 CAPSULES BY MOUTH IN THE MORNING
     Route: 048
  2. PLAQUENIL [Concomitant]
     Active Substance: HYDROXYCHLOROQUINE SULFATE
     Indication: RHEUMATOID ARTHRITIS
     Dosage: 200 MG, BID
     Route: 048
  3. PREDNISONE. [Concomitant]
     Active Substance: PREDNISONE
     Indication: ARTHRITIS
     Dosage: 10 MG, BID
     Route: 048
  4. VERAPAMIL [Concomitant]
     Active Substance: VERAPAMIL HYDROCHLORIDE
     Indication: HYPERTENSION
     Dosage: 240 MG, BID
     Route: 048
  5. RAMIPRIL. [Concomitant]
     Active Substance: RAMIPRIL
     Indication: CARDIAC DISORDER
     Dosage: 10 MG, QD
     Route: 048
  6. OXYCONTIN [Concomitant]
     Active Substance: OXYCODONE HYDROCHLORIDE
     Indication: PAIN
     Dosage: 120 MG, BID
     Route: 048
  7. ACIPHEX [Concomitant]
     Active Substance: RABEPRAZOLE SODIUM
     Indication: GASTROOESOPHAGEAL REFLUX DISEASE
     Dosage: 20 MG, QD
     Route: 048
  8. XELJANZ [Suspect]
     Active Substance: TOFACITINIB CITRATE
     Indication: RHEUMATOID ARTHRITIS
     Dosage: 5 MG, BID
     Route: 048
     Dates: start: 201407, end: 20141111
  9. ORENCIA [Suspect]
     Active Substance: ABATACEPT
     Indication: PRODUCT USED FOR UNKNOWN INDICATION
     Dosage: UNK
     Route: 065
     Dates: end: 2014
  10. ENBREL [Suspect]
     Active Substance: ETANERCEPT
     Indication: PRODUCT USED FOR UNKNOWN INDICATION
     Dosage: UNK
     Route: 065

REACTIONS (22)
  - Hallucination [Unknown]
  - Dyspnoea [Recovering/Resolving]
  - Dry mouth [Unknown]
  - Amnesia [Unknown]
  - Bone disorder [Unknown]
  - Oedema peripheral [Recovering/Resolving]
  - Skin discolouration [Not Recovered/Not Resolved]
  - Tendon rupture [Unknown]
  - Hypoperfusion [Unknown]
  - Rash [Not Recovered/Not Resolved]
  - Dysgeusia [Unknown]
  - Drug dose omission [Unknown]
  - Atrial fibrillation [Unknown]
  - Weight increased [Unknown]
  - Weight decreased [Unknown]
  - Abdominal pain upper [Unknown]
  - Pain in extremity [Unknown]
  - Arrhythmia [Unknown]
  - Parosmia [Unknown]
  - Cerebral atrophy [Unknown]
  - Pneumonia [Unknown]
  - Headache [Unknown]

NARRATIVE: CASE EVENT DATE: 2014
